FAERS Safety Report 4307546-5 (Version None)
Quarter: 2004Q1

REPORT INFORMATION
  Report Type: 
  Country: None (occurrence: None)
  Receive Date: 20040226
  Receipt Date: 20040219
  Transmission Date: 20041129
  Serious: Yes (Hospitalization)
  Sender: FDA-Public Use
  Company Number: 2004011335

PATIENT
  Age: 68 Year
  Sex: Male

DRUGS (5)
  1. LIPITOR [Suspect]
     Indication: ILL-DEFINED DISORDER
     Dosage: 80 MG
     Dates: start: 20040116
  2. RAMIPRIL [Concomitant]
  3. ACETYLSALICYLIC ACID [Concomitant]
  4. CHLORPROMAZINE [Concomitant]
  5. CLOPIDOGREL BISULFATE [Concomitant]

REACTIONS (2)
  - CIRCULATORY COLLAPSE [None]
  - FALL [None]
